FAERS Safety Report 8786437 (Version 1)
Quarter: 2012Q4

REPORT INFORMATION
  Report Type: 
  Country: JP (occurrence: JP)
  Receive Date: 20120914
  Receipt Date: 20120914
  Transmission Date: 20130627
  Serious: Yes (Hospitalization, Other)
  Sender: FDA-Public Use
  Company Number: JP-ROCHE-1110298

PATIENT
  Age: 87 Year
  Sex: Female

DRUGS (15)
  1. DENOSINE [Suspect]
     Indication: CYTOMEGALOVIRUS INFECTION
     Route: 041
     Dates: start: 20120614, end: 20120813
  2. DENOSINE [Suspect]
     Route: 041
     Dates: end: 20120818
  3. BACTRAMIN [Concomitant]
     Route: 048
     Dates: start: 20120607
  4. PROMAC [Concomitant]
     Route: 048
     Dates: start: 20120607
  5. SODIUM BICARBONATE [Concomitant]
     Route: 048
     Dates: start: 20120607
  6. FLUIBRON [Concomitant]
     Route: 048
     Dates: start: 20120607
  7. LASIX [Concomitant]
     Route: 048
     Dates: start: 20120607
  8. ALLOPURINOL [Concomitant]
     Route: 048
     Dates: start: 20120607
  9. ITRIZOLE [Concomitant]
     Route: 048
     Dates: start: 20120607
  10. AMLODIPINE [Concomitant]
     Route: 048
     Dates: start: 20120607
  11. TAKEPRON [Concomitant]
     Route: 048
     Dates: start: 20120607
  12. DIPYRIDAMOL [Concomitant]
     Route: 048
     Dates: start: 20120607
  13. SPIRONOLACTONE [Concomitant]
     Route: 048
     Dates: start: 20120607
  14. ACTONEL [Concomitant]
     Route: 048
     Dates: start: 20120607
  15. PREDNISOLONE [Concomitant]
     Route: 048
     Dates: start: 20120607

REACTIONS (2)
  - Neutrophil count decreased [Recovering/Resolving]
  - Bone marrow failure [Recovered/Resolved]
